FAERS Safety Report 9263073 (Version 2)
Quarter: 2013Q2

REPORT INFORMATION
  Report Type: Spontaneous
  Country: JP (occurrence: JP)
  Receive Date: 20130430
  Receipt Date: 20130513
  Transmission Date: 20140414
  Serious: No
  Sender: FDA-Public Use
  Company Number: JP-PFIZER INC-2013096485

PATIENT
  Age: 70 Year
  Sex: Male

DRUGS (3)
  1. VFEND [Suspect]
     Indication: ASPERGILLUS INFECTION
     Dosage: 480 MG, DAILY
     Route: 042
     Dates: start: 20130213, end: 20130213
  2. VFEND [Suspect]
     Dosage: 320 MG, DAILY
     Route: 042
     Dates: start: 20130214, end: 20130313
  3. VFEND [Suspect]
     Indication: ASPERGILLUS INFECTION
     Dosage: 400 MG, DAILY
     Route: 048
     Dates: start: 20130314

REACTIONS (4)
  - Lacrimation increased [Not Recovered/Not Resolved]
  - Eye pain [Not Recovered/Not Resolved]
  - Photophobia [Not Recovered/Not Resolved]
  - Vision blurred [Not Recovered/Not Resolved]
